FAERS Safety Report 8863763 (Version 1)
Quarter: 2012Q4

REPORT INFORMATION
  Report Type: 
  Country: US (occurrence: US)
  Receive Date: 20121024
  Receipt Date: 20121024
  Transmission Date: 20130627
  Serious: No
  Sender: FDA-Public Use
  Company Number: US-AMGEN-USASP2011063814

PATIENT
  Age: 68 Year
  Sex: Female
  Weight: 65.76 kg

DRUGS (9)
  1. ENBREL [Suspect]
     Indication: PRODUCT USED FOR UNKNOWN INDICATION
     Dosage: 50 mg, qwk
     Route: 058
  2. TEKTURNA [Concomitant]
     Dosage: 150 mg, UNK
  3. BYSTOLIC [Concomitant]
     Dosage: 2.5 mg, UNK
  4. CLONIDINE [Concomitant]
     Dosage: .1 mg, UNK
  5. HYDROXYCHLOROQUINE [Concomitant]
     Dosage: 200 mg, UNK
  6. FOLIC ACID [Concomitant]
     Dosage: 1 mg, UNK
  7. LORAZEPAM [Concomitant]
     Dosage: 1 mg, UNK
  8. METHOTREXATE [Concomitant]
     Dosage: 2.5 mg, UNK
  9. CYCLOBENZAPRINE [Concomitant]
     Dosage: 10 mg, UNK

REACTIONS (1)
  - Muscle spasms [Unknown]
